FAERS Safety Report 16561625 (Version 2)
Quarter: 2020Q2

REPORT INFORMATION
  Report Type: Report from Study
  Country: None (occurrence: DE)
  Receive Date: 20190711
  Receipt Date: 20200403
  Transmission Date: 20200713
  Serious: Yes (Hospitalization)
  Sender: FDA-Public Use
  Company Number: DE-ABBVIE-14P-062-1208797-00

PATIENT
  Age: 62 Year
  Sex: Female
  Weight: 88 kg

DRUGS (22)
  1. HYDROCHLOROTHIAZID [Concomitant]
     Active Substance: HYDROCHLOROTHIAZIDE
     Indication: PRODUCT USED FOR UNKNOWN INDICATION
     Dates: start: 1996
  2. EUCREAS [Concomitant]
     Active Substance: METFORMIN HYDROCHLORIDE\VILDAGLIPTIN
     Indication: DIABETES MELLITUS
     Dosage: IN THE MORNING
     Dates: start: 20110606
  3. ATACAND [Concomitant]
     Active Substance: CANDESARTAN CILEXETIL
     Indication: PRODUCT USED FOR UNKNOWN INDICATION
     Dates: start: 1996, end: 20100812
  4. AMARYL [Concomitant]
     Active Substance: GLIMEPIRIDE
     Indication: PRODUCT USED FOR UNKNOWN INDICATION
     Dates: start: 2006
  5. LORZAAR PLUS [Concomitant]
     Active Substance: HYDROCHLOROTHIAZIDE\LOSARTAN POTASSIUM
     Indication: HYPERTENSION
     Dosage: 50 MG / 12.5 MG
     Dates: start: 20100813
  6. L-THROX [Concomitant]
     Indication: PRODUCT USED FOR UNKNOWN INDICATION
     Dates: start: 2004
  7. BETAMETASON [Concomitant]
     Indication: PSORIASIS
     Dosage: APPLICATION
     Dates: start: 20140305, end: 20140507
  8. WOFACUTAN [Concomitant]
     Indication: PSORIASIS
     Dosage: APPLICATION
     Dates: start: 20140305
  9. BETAMETHASONE VALERATE. [Concomitant]
     Active Substance: BETAMETHASONE VALERATE
     Indication: PSORIASIS
     Dosage: APPLICATION
     Dates: start: 20121206, end: 20140302
  10. ECURAL [Concomitant]
     Active Substance: MOMETASONE
     Indication: PSORIASIS
     Dosage: APPLICATION
     Dates: start: 20130523
  11. DAIVONEX [Concomitant]
     Active Substance: CALCIPOTRIENE
     Dates: start: 20060605, end: 20140302
  12. METFORMIN [Concomitant]
     Active Substance: METFORMIN HYDROCHLORIDE
     Indication: PRODUCT USED FOR UNKNOWN INDICATION
     Dates: start: 2006
  13. EUCREAS [Concomitant]
     Active Substance: METFORMIN HYDROCHLORIDE\VILDAGLIPTIN
     Dosage: IN THE EVENING
     Dates: start: 20110606
  14. CLOBETASOL [Concomitant]
     Active Substance: CLOBETASOL
     Indication: PSORIASIS
     Dosage: APPLICATION
     Dates: start: 20140303, end: 20140304
  15. VERAPAMIL [Concomitant]
     Active Substance: VERAPAMIL HYDROCHLORIDE
     Indication: HYPERTENSION
     Dates: start: 20110101
  16. DAIVONEX [Concomitant]
     Active Substance: CALCIPOTRIENE
     Indication: PRODUCT USED FOR UNKNOWN INDICATION
     Dates: start: 20060605, end: 20140302
  17. SIMVASTATIN. [Concomitant]
     Active Substance: SIMVASTATIN
     Indication: PRODUCT USED FOR UNKNOWN INDICATION
     Dates: start: 2004
  18. ACTRAPID [Concomitant]
     Active Substance: INSULIN HUMAN
     Indication: DIABETES MELLITUS
     Dosage: IE DEPENDENT ON BLOOD SUGAR LEVEL
     Dates: start: 20140304
  19. HUMIRA [Suspect]
     Active Substance: ADALIMUMAB
     Indication: PSORIASIS
     Route: 058
     Dates: start: 20090617, end: 20140226
  20. LANTUS [Concomitant]
     Active Substance: INSULIN GLARGINE
     Indication: PRODUCT USED FOR UNKNOWN INDICATION
     Dosage: 38 IE
     Dates: start: 2007
  21. ONGLYZA [Concomitant]
     Active Substance: SAXAGLIPTIN HYDROCHLORIDE
     Indication: DIABETES MELLITUS
     Dates: start: 20100813
  22. ECURAL [Concomitant]
     Active Substance: MOMETASONE
     Dosage: APPLICATION
     Dates: start: 20140303

REACTIONS (1)
  - Dermatitis exfoliative generalised [Not Recovered/Not Resolved]

NARRATIVE: CASE EVENT DATE: 20140226
